FAERS Safety Report 4845241-4 (Version None)
Quarter: 2005Q4

REPORT INFORMATION
  Report Type: 
  Country: None (occurrence: None)
  Receive Date: 20051125
  Receipt Date: 20051116
  Transmission Date: 20060501
  Serious: Yes (Hospitalization)
  Sender: FDA-Public Use
  Company Number: US-2005-009361

PATIENT
  Age: 65 Year
  Sex: Male
  Weight: 92.3 kg

DRUGS (7)
  1. LEUKINE [Suspect]
     Indication: CROHN'S DISEASE
     Dosage: 6 UG/KG, 1X/DAY QHS, SUBCUTANEOUS
     Route: 058
     Dates: start: 20050511, end: 20050526
  2. PLACEBO [Suspect]
  3. AZULFIDINE [Concomitant]
  4. TYLENOL [Concomitant]
  5. TUMS [Concomitant]
  6. VASOTEC [Concomitant]
  7. BENADRYL (DIPHENYDRAMINE HYDROCHLORIDE) [Concomitant]

REACTIONS (5)
  - CORONARY ARTERY DISEASE [None]
  - DRUG DOSE OMISSION [None]
  - EJECTION FRACTION DECREASED [None]
  - MYOCARDIAL INFARCTION [None]
  - VENTRICULAR HYPERTROPHY [None]
